FAERS Safety Report 11706296 (Version 1)
Quarter: 2015Q4

REPORT INFORMATION
  Report Type: Spontaneous
  Country: US (occurrence: US)
  Receive Date: 20151104
  Receipt Date: 20151104
  Transmission Date: 20160304
  Serious: No
  Sender: FDA-Public Use
  Company Number: US-ELI_LILLY_AND_COMPANY-US201011007665

PATIENT
  Sex: Female

DRUGS (3)
  1. CALCIUM [Concomitant]
     Active Substance: CALCIUM
  2. FORTEO [Suspect]
     Active Substance: TERIPARATIDE
     Indication: OSTEOPOROSIS
     Dosage: 20 UG, QD
     Dates: start: 201010
  3. VITAMINS [Concomitant]
     Active Substance: VITAMINS

REACTIONS (9)
  - Bone density decreased [Unknown]
  - Fatigue [Recovered/Resolved]
  - Intervertebral disc protrusion [Unknown]
  - Asthenia [Unknown]
  - Fracture [Unknown]
  - Chest injury [Unknown]
  - Spinal fracture [Unknown]
  - Dyspnoea [Unknown]
  - Injection site pain [Unknown]
